FAERS Safety Report 8051502-0 (Version None)
Quarter: 2012Q1

REPORT INFORMATION
  Report Type: 
  Country: None (occurrence: None)
  Receive Date: 20120117
  Receipt Date: 20120112
  Transmission Date: 20120608
  Serious: No
  Sender: FDA-Public Use
  Company Number: US-BAYER-2012-005070

PATIENT
  Age: 58 Year
  Sex: Female
  Weight: 63.492 kg

DRUGS (2)
  1. TRAMADOL HCL [Concomitant]
  2. ALEVE (CAPLET) [Suspect]
     Dosage: 2 U, QD
     Route: 048
     Dates: start: 20111227

REACTIONS (1)
  - ABDOMINAL DISCOMFORT [None]
